FAERS Safety Report 13381324 (Version 1)
Quarter: 2017Q1

REPORT INFORMATION
  Report Type: Spontaneous
  Country: US (occurrence: US)
  Receive Date: 20170329
  Receipt Date: 20170329
  Transmission Date: 20170429
  Serious: No
  Sender: FDA-Public Use
  Company Number: US-TEVA-653596USA

PATIENT
  Age: 70 Year
  Sex: Female
  Weight: 53.57 kg

DRUGS (1)
  1. SUCRALFATE. [Suspect]
     Active Substance: SUCRALFATE
     Indication: REFLUX GASTRITIS
     Dosage: 4 GRAM DAILY;
     Route: 048
     Dates: start: 20151217, end: 20160116

REACTIONS (8)
  - Drug ineffective [Unknown]
  - Impulse-control disorder [Unknown]
  - Dry mouth [Unknown]
  - Off label use [Unknown]
  - Dysphonia [Unknown]
  - Oropharyngeal pain [Unknown]
  - Feeling abnormal [Unknown]
  - Nervousness [Recovered/Resolved]

NARRATIVE: CASE EVENT DATE: 201512
